FAERS Safety Report 12103939 (Version 2)
Quarter: 2016Q2

REPORT INFORMATION
  Report Type: Report from Study
  Country: US (occurrence: US)
  Receive Date: 20160223
  Receipt Date: 20160513
  Transmission Date: 20160815
  Serious: Yes (Hospitalization)
  Sender: FDA-Public Use
  Company Number: US-ROCHE-1714859

PATIENT
  Age: 55 Year
  Sex: Female

DRUGS (23)
  1. VITAMIN B12 [Concomitant]
     Active Substance: CYANOCOBALAMIN
     Route: 065
  2. VITAMIN D3 [Concomitant]
     Active Substance: CHOLECALCIFEROL
     Dosage: 2000 UNIT
     Route: 065
  3. DEXAMETHASON [Concomitant]
     Active Substance: DEXAMETHASONE
     Route: 065
  4. FLUDROCORTISON [Concomitant]
     Active Substance: FLUDROCORTISONE
     Route: 065
  5. RANITIDINE. [Concomitant]
     Active Substance: RANITIDINE
     Route: 065
  6. SYMBICORT [Concomitant]
     Active Substance: BUDESONIDE\FORMOTEROL FUMARATE DIHYDRATE
     Dosage: 160-4.5
     Route: 065
  7. FLUTICASONE [Concomitant]
     Active Substance: FLUTICASONE\FLUTICASONE PROPIONATE
     Route: 065
  8. GABAPENTIN. [Concomitant]
     Active Substance: GABAPENTIN
     Route: 065
  9. CETRIZINE [Concomitant]
     Active Substance: CETIRIZINE HYDROCHLORIDE
     Route: 065
  10. LIVALO [Concomitant]
     Active Substance: PITAVASTATIN CALCIUM
     Route: 065
  11. XOLAIR [Suspect]
     Active Substance: OMALIZUMAB
     Indication: ASTHMA
     Route: 058
     Dates: start: 20141217
  12. NEXIUM [Concomitant]
     Active Substance: ESOMEPRAZOLE MAGNESIUM
     Route: 065
  13. PREDNISONE. [Concomitant]
     Active Substance: PREDNISONE
     Route: 065
  14. CALCIUM CARBONATE. [Concomitant]
     Active Substance: CALCIUM CARBONATE
     Route: 065
  15. IPRATROPIUM [Concomitant]
     Active Substance: IPRATROPIUM
     Route: 065
  16. TRAZODONE [Concomitant]
     Active Substance: TRAZODONE HYDROCHLORIDE
     Route: 065
  17. VENTOLIN HFA [Concomitant]
     Active Substance: ALBUTEROL SULFATE
  18. GUAIFENESIN. [Concomitant]
     Active Substance: GUAIFENESIN
     Route: 065
  19. SUPER B COMPLEX [Concomitant]
     Active Substance: CYANOCOBALAMIN\DEXPANTHENOL\NIACINAMIDE\PYRIDOXINE HYDROCHLORIDE\RIBOFLAVIN 5^-PHOSPHATE SODIUM\THIAMINE HYDROCHLORIDE\VITAMIN B COMPLEX
  20. TYLENOL [Concomitant]
     Active Substance: ACETAMINOPHEN
     Route: 065
  21. ALVESCO [Concomitant]
     Active Substance: CICLESONIDE
     Route: 065
  22. AZELASTINE [Concomitant]
     Active Substance: AZELASTINE
     Route: 065
  23. TRAMADOL HCL [Concomitant]
     Active Substance: TRAMADOL HYDROCHLORIDE
     Route: 065

REACTIONS (6)
  - Chest pain [Recovered/Resolved]
  - Asthma [Recovered/Resolved]
  - Bronchitis [Recovered/Resolved]
  - Nasal congestion [Not Recovered/Not Resolved]
  - Rhinitis [Not Recovered/Not Resolved]
  - Sinus headache [Not Recovered/Not Resolved]

NARRATIVE: CASE EVENT DATE: 201602
